FAERS Safety Report 6739495-7 (Version None)
Quarter: 2010Q2

REPORT INFORMATION
  Report Type: 
  Country: None (occurrence: None)
  Receive Date: 20100525
  Receipt Date: 20100521
  Transmission Date: 20101027
  Serious: Yes (Other)
  Sender: FDA-Public Use
  Company Number: US-GILEAD-2010-0029068

PATIENT
  Sex: Male
  Weight: 65.83 kg

DRUGS (8)
  1. LETAIRIS [Suspect]
     Indication: PULMONARY ARTERIAL HYPERTENSION
     Route: 048
     Dates: start: 20100225
  2. METOPROLOL [Concomitant]
  3. LIPITOR [Concomitant]
  4. NITROGLYCERIN [Concomitant]
  5. ISOSORBIDE DN [Concomitant]
  6. PRAVASTATIN SODIUM [Concomitant]
  7. PREDNISONE TAB [Concomitant]
  8. FAMOTIDINE [Concomitant]

REACTIONS (2)
  - DIZZINESS [None]
  - THROMBOSIS [None]
